FAERS Safety Report 8217287-X (Version None)
Quarter: 2012Q1

REPORT INFORMATION
  Report Type: 
  Country: None (occurrence: None)
  Receive Date: 20120319
  Receipt Date: 20120313
  Transmission Date: 20120608
  Serious: No
  Sender: FDA-Public Use
  Company Number: US-PFIZER INC-2012066488

PATIENT
  Sex: Female

DRUGS (2)
  1. PRISTIQ [Suspect]
     Dosage: 100 MG, 1X/DAY
     Route: 048
  2. PRISTIQ [Suspect]
     Indication: DEPRESSION
     Dosage: 50 MG, 1X/DAY
     Route: 048

REACTIONS (9)
  - ANXIETY [None]
  - PSYCHIATRIC SYMPTOM [None]
  - SOMNOLENCE [None]
  - DRUG INEFFECTIVE [None]
  - DIZZINESS [None]
  - LETHARGY [None]
  - HORMONE LEVEL ABNORMAL [None]
  - DEPRESSION [None]
  - FATIGUE [None]
